FAERS Safety Report 15384614 (Version 3)
Quarter: 2018Q3

REPORT INFORMATION
  Report Type: Spontaneous
  Country: US (occurrence: US)
  Receive Date: 20180914
  Receipt Date: 20180921
  Transmission Date: 20181010
  Serious: Yes (Life-Threatening, Hospitalization, Other)
  Sender: FDA-Public Use
  Company Number: US-AUROBINDO-AUR-APL-2018-044419

PATIENT
  Age: 36 Year
  Sex: Male

DRUGS (2)
  1. OLANZAPINE. [Suspect]
     Active Substance: OLANZAPINE
     Indication: SCHIZOPHRENIA
     Dosage: UNK
     Route: 065
  2. RISPERIDONE. [Concomitant]
     Active Substance: RISPERIDONE
     Indication: SCHIZOPHRENIA

REACTIONS (10)
  - Fatigue [Recovered/Resolved]
  - Increased appetite [Unknown]
  - Glucose tolerance impaired [Recovered/Resolved]
  - Rhabdomyolysis [Recovered/Resolved]
  - Polydipsia [Recovered/Resolved]
  - Diabetic ketoacidosis [Recovered/Resolved]
  - Polyuria [Recovered/Resolved]
  - Confusional state [Recovered/Resolved]
  - Acute kidney injury [Recovered/Resolved]
  - Weight increased [Unknown]
